FAERS Safety Report 6861421-0 (Version None)
Quarter: 2010Q3

REPORT INFORMATION
  Report Type: 
  Country: None (occurrence: None)
  Receive Date: 20100720
  Receipt Date: 20100713
  Transmission Date: 20110219
  Serious: Yes (Hospitalization, Other)
  Sender: FDA-Public Use
  Company Number: AU-AMGEN-QUU419742

PATIENT
  Sex: Male

DRUGS (16)
  1. ARANESP [Suspect]
     Indication: RENAL FAILURE CHRONIC
     Route: 058
     Dates: start: 20060726
  2. SODIUM BICARBONATE [Concomitant]
     Route: 048
  3. CALTRATE [Concomitant]
     Route: 048
  4. ALBUTEROL [Concomitant]
  5. NORMAL SALINE [Concomitant]
  6. SYMBICORT [Concomitant]
  7. COVERSYL [Concomitant]
     Route: 048
  8. HYDRALAZINE HCL [Concomitant]
     Route: 048
  9. NORVASC [Concomitant]
     Route: 048
  10. LEVOTHYROXINE SODIUM [Concomitant]
     Route: 048
  11. ASPIRIN [Concomitant]
     Route: 048
  12. METOPROLOL [Concomitant]
  13. TIMOLOL MALEATE [Concomitant]
  14. LIPITOR [Concomitant]
  15. IMDUR [Concomitant]
  16. ZANTAC [Concomitant]

REACTIONS (4)
  - FOOD POISONING [None]
  - PNEUMONIA [None]
  - SYNCOPE [None]
  - THERAPEUTIC RESPONSE DECREASED [None]
